FAERS Safety Report 24591994 (Version 1)
Quarter: 2024Q4

REPORT INFORMATION
  Report Type: Spontaneous
  Country: CN (occurrence: CN)
  Receive Date: 20241108
  Receipt Date: 20241108
  Transmission Date: 20250114
  Serious: Yes (Other)
  Sender: ROCHE
  Company Number: CN-ROCHE-10000122899

PATIENT
  Age: 65 Year
  Sex: Female
  Weight: 74 kg

DRUGS (1)
  1. GLOFITAMAB [Suspect]
     Active Substance: GLOFITAMAB
     Indication: Lymphoma
     Route: 042
     Dates: start: 20241029, end: 20241029

REACTIONS (2)
  - Hyperpyrexia [Recovering/Resolving]
  - Heart rate increased [Recovering/Resolving]

NARRATIVE: CASE EVENT DATE: 20241029
